FAERS Safety Report 13429287 (Version 2)
Quarter: 2017Q2

REPORT INFORMATION
  Report Type: Report from Study
  Country: US (occurrence: US)
  Receive Date: 20170411
  Receipt Date: 20170420
  Transmission Date: 20170830
  Serious: Yes (Hospitalization)
  Sender: FDA-Public Use
  Company Number: US-ACTELION-A-US2017-152246

PATIENT
  Age: 69 Year
  Sex: Female

DRUGS (6)
  1. TRACLEER [Suspect]
     Active Substance: BOSENTAN
     Indication: PULMONARY ARTERIAL HYPERTENSION
     Dosage: 125 MG, BID
     Route: 048
     Dates: start: 20141121, end: 20170314
  2. ATIVAN [Concomitant]
     Active Substance: LORAZEPAM
     Dosage: 2 MG, UNK
     Route: 048
  3. ALDACTONE [Concomitant]
     Active Substance: SPIRONOLACTONE
     Dosage: 5 MG, UNK
  4. OXYGEN. [Concomitant]
     Active Substance: OXYGEN
  5. PROZAC [Concomitant]
     Active Substance: FLUOXETINE HYDROCHLORIDE
     Dosage: 4 MG, UNK
  6. TYVASO [Concomitant]
     Active Substance: TREPROSTINIL

REACTIONS (6)
  - Dyspnoea [Unknown]
  - Sepsis [Unknown]
  - Diarrhoea [Unknown]
  - Pneumonia [Unknown]
  - Lung consolidation [Unknown]
  - Cardiomegaly [Unknown]

NARRATIVE: CASE EVENT DATE: 20170226
